FAERS Safety Report 6396614-2 (Version None)
Quarter: 2009Q4

REPORT INFORMATION
  Report Type: 
  Country: None (occurrence: None)
  Receive Date: 20091012
  Receipt Date: 20090721
  Transmission Date: 20100525
  Serious: No
  Sender: FDA-Public Use
  Company Number: US-ASTRAZENECA-2009SE05493

PATIENT
  Age: 79 Year
  Sex: Female

DRUGS (2)
  1. SYMBICORT [Suspect]
     Indication: EMPHYSEMA
     Dosage: 640
     Route: 055
  2. SPIRIVA [Concomitant]
     Indication: EMPHYSEMA

REACTIONS (1)
  - AMNESIA [None]
